FAERS Safety Report 13738955 (Version 2)
Quarter: 2018Q2

REPORT INFORMATION
  Report Type: Spontaneous
  Country: US (occurrence: US)
  Receive Date: 20170710
  Receipt Date: 20180627
  Transmission Date: 20180711
  Serious: No
  Sender: FDA-Public Use
  Company Number: US-SAOL THERAPEUTICS-2017SAO01051

PATIENT

DRUGS (9)
  1. AMBIEN [Concomitant]
     Active Substance: ZOLPIDEM TARTRATE
  2. MARINOL [Concomitant]
     Active Substance: DRONABINOL
  3. PAMELOR [Concomitant]
     Active Substance: NORTRIPTYLINE HYDROCHLORIDE
  4. OXYCODONE [Concomitant]
     Active Substance: OXYCODONE
  5. GABLOFEN [Suspect]
     Active Substance: BACLOFEN
     Dosage: 635.3 ?G, \DAY
     Route: 037
  6. LISINOPRIL. [Concomitant]
     Active Substance: LISINOPRIL
  7. COENZYME Q10 [Concomitant]
     Active Substance: UBIDECARENONE
  8. GABAPENTIN. [Concomitant]
     Active Substance: GABAPENTIN
  9. ASPIRIN. [Concomitant]
     Active Substance: ASPIRIN

REACTIONS (2)
  - Hypertonia [Unknown]
  - Therapeutic response decreased [Unknown]

NARRATIVE: CASE EVENT DATE: 2016
